FAERS Safety Report 4867448-2 (Version None)
Quarter: 2005Q4

REPORT INFORMATION
  Report Type: 
  Country: None (occurrence: None)
  Receive Date: 20051228
  Receipt Date: 20050706
  Transmission Date: 20060501
  Serious: Yes (Hospitalization, Other)
  Sender: FDA-Public Use
  Company Number: US-MERCK-0507USA00613

PATIENT
  Age: 55 Year
  Sex: Male

DRUGS (17)
  1. VIOXX [Suspect]
     Indication: ARTHRITIS
     Route: 048
     Dates: start: 20020601, end: 20030101
  2. TOPROL-XL [Concomitant]
     Route: 048
  3. ISMO [Concomitant]
     Route: 048
  4. LIPITOR [Concomitant]
     Route: 048
  5. PLAVIX [Concomitant]
     Route: 048
  6. NIACIN [Concomitant]
     Route: 048
  7. ASPIRIN [Concomitant]
     Route: 048
  8. NITROGLYCERIN [Concomitant]
     Route: 065
  9. PRILOSEC [Concomitant]
     Route: 048
  10. SYNTHROID [Concomitant]
     Route: 048
  11. ALBUTEROL [Concomitant]
     Route: 065
  12. XANAX [Concomitant]
     Route: 065
  13. HYTRIN [Concomitant]
     Route: 065
  14. FLONASE [Concomitant]
     Route: 065
  15. SINGULAIR [Concomitant]
     Route: 065
  16. HYDROCODONE HYDROCHLORIDE [Concomitant]
     Route: 065
  17. TYLENOL [Concomitant]
     Route: 065

REACTIONS (16)
  - ACUTE MYOCARDIAL INFARCTION [None]
  - ANHEDONIA [None]
  - ANXIETY [None]
  - ASTHMA [None]
  - CHEST PAIN [None]
  - COUGH [None]
  - DEPRESSION [None]
  - HAEMATURIA [None]
  - HOT FLUSH [None]
  - HYPERLIPIDAEMIA [None]
  - HYPERSENSITIVITY [None]
  - HYPOAESTHESIA [None]
  - NEPHROLITHIASIS [None]
  - PAIN [None]
  - PEPTIC ULCER [None]
  - PLEURITIC PAIN [None]
